FAERS Safety Report 21004468 (Version 2)
Quarter: 2022Q4

REPORT INFORMATION
  Report Type: Spontaneous
  Country: US (occurrence: US)
  Receive Date: 20220624
  Receipt Date: 20221027
  Transmission Date: 20230113
  Serious: Yes (Hospitalization, Other)
  Sender: FDA-Public Use
  Company Number: US-BRISTOL-MYERS SQUIBB COMPANY-2022-063808

PATIENT
  Age: 82 Year
  Sex: Female
  Weight: 100.24 kg

DRUGS (2)
  1. POMALYST [Suspect]
     Active Substance: POMALIDOMIDE
     Indication: Plasma cell myeloma
     Dosage: 1 CAPSULE DAILY ON DAYS 1-21 EVERY 28 ?DAY CYCLE
     Route: 048
     Dates: start: 20220529
  2. POMALYST [Suspect]
     Active Substance: POMALIDOMIDE
     Dosage: 2 CAPS DAILY X 21 DAYS ON AND 7 DAYS OF
     Route: 048
     Dates: start: 20220701

REACTIONS (8)
  - Fatigue [Unknown]
  - Asthenia [Unknown]
  - Transient ischaemic attack [Not Recovered/Not Resolved]
  - Facial paralysis [Not Recovered/Not Resolved]
  - Neuropathy peripheral [Not Recovered/Not Resolved]
  - Gait disturbance [Not Recovered/Not Resolved]
  - Clumsiness [Not Recovered/Not Resolved]
  - Dysstasia [Not Recovered/Not Resolved]
